FAERS Safety Report 7152775-9 (Version None)
Quarter: 2010Q4

REPORT INFORMATION
  Report Type: 
  Country: None (occurrence: None)
  Receive Date: 20101213
  Receipt Date: 20101201
  Transmission Date: 20110411
  Serious: Yes (Other)
  Sender: FDA-Public Use
  Company Number: DE-PFIZER INC-2010161427

PATIENT
  Age: 50 Year
  Sex: Female

DRUGS (1)
  1. AROMASIN [Suspect]
     Indication: BREAST CANCER FEMALE
     Dosage: UNK
     Dates: start: 20101001

REACTIONS (5)
  - BRONCHITIS [None]
  - HEADACHE [None]
  - HOT FLUSH [None]
  - PRURITUS [None]
  - SINUS CONGESTION [None]
